FAERS Safety Report 8417027-5 (Version None)
Quarter: 2012Q2

REPORT INFORMATION
  Report Type: 
  Country: None (occurrence: None)
  Receive Date: 20120530
  Receipt Date: 20120515
  Transmission Date: 20120825
  Serious: Yes (Hospitalization, Other)
  Sender: FDA-Public Use
  Company Number: 2012-001819

PATIENT
  Age: 52 Year
  Sex: Female

DRUGS (7)
  1. WARFARIN SODIUM [Concomitant]
  2. CHLORVESCENT (POTASSIUM CHLORIDE) [Concomitant]
  3. ENABLEX [Suspect]
     Indication: BLADDER DISORDER
     Dosage: ORAL
     Route: 048
     Dates: start: 20120401, end: 20120417
  4. FLECAINIDE ACETATE [Concomitant]
  5. ZOLOFT [Concomitant]
  6. PROTOS (PROTOPORPHYRIN) [Concomitant]
  7. CALCIUM CARBONATE [Concomitant]

REACTIONS (7)
  - TACHYCARDIA [None]
  - CONDITION AGGRAVATED [None]
  - ATRIAL FLUTTER [None]
  - HEART RATE INCREASED [None]
  - BUNDLE BRANCH BLOCK [None]
  - ATRIOVENTRICULAR BLOCK [None]
  - PALPITATIONS [None]
